FAERS Safety Report 12591642 (Version 1)
Quarter: 2016Q3

REPORT INFORMATION
  Report Type: Report from Study
  Country: NL (occurrence: NL)
  Receive Date: 20160726
  Receipt Date: 20160726
  Transmission Date: 20161109
  Serious: Yes (Hospitalization)
  Sender: FDA-Public Use
  Company Number: NL-ROCHE-1799800

PATIENT
  Age: 62 Year
  Sex: Female

DRUGS (5)
  1. METHOTREXATE. [Suspect]
     Active Substance: METHOTREXATE
     Indication: CENTRAL NERVOUS SYSTEM LYMPHOMA
     Dosage: DATE OF LAST DOSE PRIOR TO ADVERSE EVENT ON 01/AUG/2014
     Route: 065
     Dates: start: 20140718
  2. TENIPOSIDE. [Suspect]
     Active Substance: TENIPOSIDE
     Indication: CENTRAL NERVOUS SYSTEM LYMPHOMA
     Dosage: DATE OF MOST RECENT DOSE PRIOR TO ADVERSE EVENT ON 20/JUL/2014.
     Route: 065
     Dates: start: 20140719
  3. RITUXIMAB [Suspect]
     Active Substance: RITUXIMAB
     Indication: CENTRAL NERVOUS SYSTEM LYMPHOMA
     Dosage: DATE OF LAST DOSE PRIOR TO ADVERSE EVENT ON 31/JUL/2014.
     Route: 042
     Dates: start: 20140717
  4. BICNU [Suspect]
     Active Substance: CARMUSTINE
     Indication: CENTRAL NERVOUS SYSTEM LYMPHOMA
     Dosage: DATE OF LAST DOSE PRIOR TO ADVERSE EVENT ON 21/JUL/2014.
     Route: 065
     Dates: start: 20140721
  5. OXYCONTIN [Suspect]
     Active Substance: OXYCODONE HYDROCHLORIDE
     Indication: PRODUCT USED FOR UNKNOWN INDICATION
     Route: 065

REACTIONS (1)
  - Delirium [Recovered/Resolved]

NARRATIVE: CASE EVENT DATE: 20140809
